FAERS Safety Report 25062278 (Version 1)
Quarter: 2025Q1

REPORT INFORMATION
  Report Type: Report from Study
  Country: US (occurrence: US)
  Receive Date: 20250311
  Receipt Date: 20250311
  Transmission Date: 20250409
  Serious: Yes (Other)
  Sender: ACADIA PHARMACEUTICALS
  Company Number: US-ACADIA PHARMACEUTICALS INC.-ACA-2025-PIM-002528

PATIENT
  Age: 64 Year
  Sex: Male

DRUGS (16)
  1. NUPLAZID [Suspect]
     Active Substance: PIMAVANSERIN TARTRATE
     Indication: Parkinson^s disease
     Dosage: 34 MILLIGRAM, QD
     Route: 048
     Dates: start: 20231105
  2. LORAZEPAM [Concomitant]
     Active Substance: LORAZEPAM
  3. IRON [Concomitant]
     Active Substance: IRON
  4. ESCITALOPRAM [Concomitant]
     Active Substance: ESCITALOPRAM OXALATE
  5. TRAZODONE [Concomitant]
     Active Substance: TRAZODONE HYDROCHLORIDE
  6. HYDROXYZINE [Concomitant]
     Active Substance: HYDROXYZINE HYDROCHLORIDE
  7. CARBIDOPA\LEVODOPA [Concomitant]
     Active Substance: CARBIDOPA\LEVODOPA
  8. TRAMADOL [Concomitant]
     Active Substance: TRAMADOL
  9. LIDOCAINE [Concomitant]
     Active Substance: LIDOCAINE
  10. MUCINEX [Concomitant]
     Active Substance: GUAIFENESIN
  11. ROSUVASTATIN [Concomitant]
     Active Substance: ROSUVASTATIN
  12. ASPIRIN [Concomitant]
     Active Substance: ASPIRIN
  13. CEFIXIME [Concomitant]
     Active Substance: CEFIXIME
  14. IBUPROFEN [Concomitant]
     Active Substance: IBUPROFEN
  15. OFLOXACIN [Concomitant]
     Active Substance: OFLOXACIN
  16. TYLENOL [Concomitant]
     Active Substance: ACETAMINOPHEN

REACTIONS (1)
  - Kidney infection [Not Recovered/Not Resolved]

NARRATIVE: CASE EVENT DATE: 20240828
